FAERS Safety Report 9435858 (Version 1)
Quarter: 2013Q3

REPORT INFORMATION
  Report Type: Spontaneous
  Country: US (occurrence: None)
  Receive Date: 20130801
  Receipt Date: 20130801
  Transmission Date: 20140515
  Serious: Yes (Other)
  Sender: FDA-Public Use
  Company Number: None

PATIENT
  Age: 33 Year
  Sex: Female
  Weight: 77.11 kg

DRUGS (1)
  1. BUDEPRION XL [Suspect]
     Indication: DEPRESSION
     Route: 048
     Dates: start: 20110801, end: 20130731

REACTIONS (8)
  - Nausea [None]
  - Dizziness [None]
  - Fatigue [None]
  - Presyncope [None]
  - Product substitution issue [None]
  - Malaise [None]
  - Depression [None]
  - Disease recurrence [None]
